FAERS Safety Report 19395368 (Version 5)
Quarter: 2021Q3

REPORT INFORMATION
  Report Type: Report from Study
  Country: CO (occurrence: CO)
  Receive Date: 20210609
  Receipt Date: 20210828
  Transmission Date: 20211014
  Serious: Yes (Other)
  Sender: FDA-Public Use
  Company Number: NVSC2021CO117617

PATIENT
  Age: 42 Year
  Sex: Male
  Weight: 82 kg

DRUGS (11)
  1. REVOLADE [Suspect]
     Active Substance: ELTROMBOPAG OLAMINE
     Dosage: 75 MG, QD
     Route: 048
  2. REVOLADE [Suspect]
     Active Substance: ELTROMBOPAG OLAMINE
     Dosage: UNK UNK, QD
     Route: 048
  3. THYMOGLOBULIN [Concomitant]
     Active Substance: LAPINE T-LYMPHOCYTE IMMUNE GLOBULIN
     Indication: PRODUCT USED FOR UNKNOWN INDICATION
     Dosage: UNK
     Route: 065
  4. CYCLOSPORINE. [Suspect]
     Active Substance: CYCLOSPORINE
     Indication: APLASTIC ANAEMIA
     Dosage: 100 MG (2 IN THE MORNING AND ONE AT NIGHT)
     Route: 048
     Dates: start: 202104
  5. ERYTHROPOIETIN [Concomitant]
     Active Substance: ERYTHROPOIETIN
     Indication: PRODUCT USED FOR UNKNOWN INDICATION
     Dosage: UNK
     Route: 065
  6. FLUCONAZOLE. [Concomitant]
     Active Substance: FLUCONAZOLE
     Indication: APLASTIC ANAEMIA
     Dosage: 200 MG, QD
     Route: 048
     Dates: start: 202104
  7. REVOLADE [Suspect]
     Active Substance: ELTROMBOPAG OLAMINE
     Indication: APLASTIC ANAEMIA
     Dosage: 150 MG, QD (15 DAYS AGO) (6 TABLETS OF 25 MG)
     Route: 048
     Dates: start: 202104
  8. ACYCLOVIR. [Concomitant]
     Active Substance: ACYCLOVIR
     Indication: APLASTIC ANAEMIA
     Dosage: 25 MG, QD (6 OF 25 MG)
     Route: 048
     Dates: start: 202104
  9. TRIMETHOPRIM. [Concomitant]
     Active Substance: TRIMETHOPRIM
     Indication: APLASTIC ANAEMIA
     Dosage: 800 MG, QD (MONDAYS, WEDNESDAY AND FRIDAY)
     Route: 048
     Dates: start: 202104
  10. FOLIC ACID. [Concomitant]
     Active Substance: FOLIC ACID
     Indication: APLASTIC ANAEMIA
     Dosage: 5 MG, QD
     Route: 048
     Dates: start: 202104
  11. OMEPRAZOLE. [Concomitant]
     Active Substance: OMEPRAZOLE
     Indication: GASTRITIS
     Dosage: 20 MG, QD
     Route: 048
     Dates: start: 202104

REACTIONS (9)
  - Haemoglobin decreased [Unknown]
  - White blood cell count decreased [Unknown]
  - Arthralgia [Unknown]
  - Platelet count increased [Unknown]
  - Platelet count decreased [Unknown]
  - Product supply issue [Unknown]
  - Product use in unapproved indication [Unknown]
  - Haemoglobin increased [Unknown]
  - Dysuria [Unknown]

NARRATIVE: CASE EVENT DATE: 20210601
